FAERS Safety Report 5452153-4 (Version None)
Quarter: 2007Q3

REPORT INFORMATION
  Report Type: 
  Country: None (occurrence: None)
  Receive Date: 20070912
  Receipt Date: 20070831
  Transmission Date: 20080115
  Serious: Yes (Hospitalization)
  Sender: FDA-Public Use
  Company Number: 012928

PATIENT
  Age: 46 Year
  Sex: Male

DRUGS (8)
  1. PRIALT [Suspect]
     Indication: BACK PAIN
     Dosage: SEE IMAGE
     Route: 037
     Dates: start: 20070408, end: 20070411
  2. DULOXETINE (DULOXETINE) [Concomitant]
  3. IMIPRAMINE [Concomitant]
  4. OXYCODONE HCL [Concomitant]
  5. CYMBALTA [Concomitant]
  6. LYRICA [Concomitant]
  7. ANTIHYPERTENSIVES [Concomitant]
  8. SERUMLIPIDREDUCING AGENTS [Concomitant]

REACTIONS (7)
  - DELUSION [None]
  - DYSPHASIA [None]
  - HALLUCINATION [None]
  - HALLUCINATION, AUDITORY [None]
  - PARAESTHESIA ORAL [None]
  - SCHIZOPHRENIA, PARANOID TYPE [None]
  - SPEECH DISORDER [None]
